FAERS Safety Report 24724473 (Version 1)
Quarter: 2024Q4

REPORT INFORMATION
  Report Type: Spontaneous
  Country: US (occurrence: US)
  Receive Date: 20241212
  Receipt Date: 20241212
  Transmission Date: 20250115
  Serious: Yes (Hospitalization)
  Sender: ALEXION PHARMACEUTICALS
  Company Number: US-AstraZeneca-CH-00761188A

PATIENT

DRUGS (6)
  1. LYNPARZA [Suspect]
     Active Substance: OLAPARIB
     Indication: Pancreatic carcinoma metastatic
  2. LYNPARZA [Suspect]
     Active Substance: OLAPARIB
     Route: 048
  3. LYNPARZA [Suspect]
     Active Substance: OLAPARIB
  4. LYNPARZA [Suspect]
     Active Substance: OLAPARIB
     Route: 048
  5. Pembrolizumab;Temozolomide [Concomitant]
  6. PADCEV [Concomitant]
     Active Substance: ENFORTUMAB VEDOTIN\ENFORTUMAB VEDOTIN-EJFV

REACTIONS (2)
  - White blood cell count decreased [Recovering/Resolving]
  - Platelet count decreased [Recovering/Resolving]
